FAERS Safety Report 4851290-2 (Version None)
Quarter: 2005Q4

REPORT INFORMATION
  Report Type: 
  Country: None (occurrence: None)
  Receive Date: 20051212
  Receipt Date: 20051114
  Transmission Date: 20060501
  Serious: Yes (Disabling, Other)
  Sender: FDA-Public Use
  Company Number: AU-AVENTIS-200520256GDDC

PATIENT
  Age: 64 Year
  Sex: Male

DRUGS (1)
  1. ANANDRON [Suspect]
     Dates: start: 20051001, end: 20051109

REACTIONS (6)
  - DYSPHONIA [None]
  - FATIGUE [None]
  - LETHARGY [None]
  - MUSCLE TWITCHING [None]
  - NERVOUS SYSTEM DISORDER [None]
  - SOMNOLENCE [None]
